FAERS Safety Report 6514197-0 (Version None)
Quarter: 2009Q4

REPORT INFORMATION
  Report Type: 
  Country: None (occurrence: None)
  Receive Date: 20091223
  Receipt Date: 20091211
  Transmission Date: 20100525
  Serious: Yes (Life-Threatening, Hospitalization)
  Sender: FDA-Public Use
  Company Number: AU-RANBAXY-2009US-29540

PATIENT

DRUGS (3)
  1. VERAPAMIL [Suspect]
     Indication: DRUG USE FOR UNKNOWN INDICATION
     Dosage: 480 MG DAILY
     Route: 065
  2. GLICLAZIDE [Suspect]
     Indication: DIABETES MELLITUS
     Dosage: 30 MG, QD
     Route: 065
  3. FUROSEMIDE [Suspect]
     Indication: HYPERTENSION
     Dosage: 20 MG, QD
     Route: 065

REACTIONS (14)
  - ATRIAL FIBRILLATION [None]
  - BLOOD GLUCOSE INCREASED [None]
  - BLOOD PH DECREASED [None]
  - BLOOD PRESSURE DECREASED [None]
  - BRADYARRHYTHMIA [None]
  - CARDIOTOXICITY [None]
  - CREPITATIONS [None]
  - DIZZINESS [None]
  - HYPERHIDROSIS [None]
  - ISCHAEMIA [None]
  - LEFT VENTRICULAR HYPERTROPHY [None]
  - NODAL ARRHYTHMIA [None]
  - NODAL RHYTHM [None]
  - SICK SINUS SYNDROME [None]
